FAERS Safety Report 13962592 (Version 1)
Quarter: 2017Q3

REPORT INFORMATION
  Report Type: Spontaneous
  Country: IR (occurrence: IR)
  Receive Date: 20170913
  Receipt Date: 20170913
  Transmission Date: 20171128
  Serious: Yes (Other)
  Sender: FDA-Public Use
  Company Number: IR-SUN PHARMACEUTICAL INDUSTRIES LTD-2017RR-149525

PATIENT
  Age: 39 Year
  Sex: Male

DRUGS (5)
  1. CIPROFLOXACIN. [Suspect]
     Active Substance: CIPROFLOXACIN
     Indication: SUBACUTE ENDOCARDITIS
     Route: 065
  2. DICLOFENAC [Concomitant]
     Active Substance: DICLOFENAC
     Indication: PAIN IN EXTREMITY
     Route: 065
  3. VANCOMYCIN [Suspect]
     Active Substance: VANCOMYCIN
     Indication: SUBACUTE ENDOCARDITIS
     Route: 065
  4. GENTAMYCIN [Suspect]
     Active Substance: GENTAMICIN
     Indication: SUBACUTE ENDOCARDITIS
     Dosage: 80 MG, TID
     Route: 065
  5. AMPICILLIN [Suspect]
     Active Substance: AMPICILLIN
     Indication: SUBACUTE ENDOCARDITIS
     Dosage: 2 G, Q4H
     Route: 065

REACTIONS (6)
  - Drug effect incomplete [Unknown]
  - Infective aneurysm [Recovered/Resolved]
  - Tenderness [Unknown]
  - Myalgia [Unknown]
  - Muscle spasms [Recovered/Resolved]
  - Pain in extremity [Recovered/Resolved]
